FAERS Safety Report 4589250-1 (Version None)
Quarter: 2005Q1

REPORT INFORMATION
  Report Type: 
  Country: None (occurrence: None)
  Receive Date: 20050217
  Receipt Date: 20050217
  Transmission Date: 20050727
  Serious: Yes (Hospitalization)
  Sender: FDA-Public Use
  Company Number: None

PATIENT
  Age: 43 Year
  Sex: Female
  Weight: 81.1939 kg

DRUGS (2)
  1. WELLBUTRIN XL [Suspect]
     Indication: ANXIETY
     Dosage: 300 MG /DAILY PO [ STARTED 150 ON 1/29 INCR 300 MG ON 2/2/05]
     Route: 048
     Dates: start: 20050129
  2. WELLBUTRIN XL [Suspect]
     Indication: ANXIETY
     Dosage: 300 MG /DAILY PO [ STARTED 150 ON 1/29 INCR 300 MG ON 2/2/05]
     Route: 048
     Dates: start: 20050202

REACTIONS (5)
  - ABASIA [None]
  - CONFUSIONAL STATE [None]
  - DIZZINESS [None]
  - HYPERTENSION [None]
  - VISION BLURRED [None]
